FAERS Safety Report 5902073-3 (Version None)
Quarter: 2008Q3

REPORT INFORMATION
  Report Type: 
  Country: None (occurrence: None)
  Receive Date: 20080929
  Receipt Date: 20080917
  Transmission Date: 20090109
  Serious: Yes (Hospitalization, Other)
  Sender: FDA-Public Use
  Company Number: DE-BAYER-200826604GPV

PATIENT
  Age: 50 Year
  Sex: Female
  Weight: 77 kg

DRUGS (2)
  1. PRIMOVIST [Suspect]
     Indication: HEPATIC ADENOMA
     Route: 042
     Dates: start: 20080821
  2. ANTIHYPERTENSIVES NOS [Concomitant]
     Indication: DRUG USE FOR UNKNOWN INDICATION

REACTIONS (2)
  - ECZEMA INFECTED [None]
  - PRURITUS [None]
